FAERS Safety Report 16392000 (Version 1)
Quarter: 2019Q2

REPORT INFORMATION
  Report Type: Spontaneous
  Country: SE (occurrence: SE)
  Receive Date: 20190605
  Receipt Date: 20190605
  Transmission Date: 20190711
  Serious: Yes (Other)
  Sender: FDA-Public Use
  Company Number: SE-ROCHE-2330712

PATIENT
  Age: 30 Year
  Sex: Male

DRUGS (3)
  1. IKTORIVIL [Suspect]
     Active Substance: CLONAZEPAM
     Indication: PRODUCT USED FOR UNKNOWN INDICATION
     Route: 065
  2. AMPHETAMINE [Concomitant]
     Active Substance: AMPHETAMINE
  3. TETRAHYDROCANNABINOL [Concomitant]
     Active Substance: DRONABINOL

REACTIONS (1)
  - Alcohol poisoning [Unknown]
